FAERS Safety Report 13431751 (Version 1)
Quarter: 2017Q2

REPORT INFORMATION
  Report Type: Spontaneous
  Country: GB (occurrence: GB)
  Receive Date: 20170412
  Receipt Date: 20170412
  Transmission Date: 20170830
  Serious: Yes (Hospitalization, Other)
  Sender: FDA-Public Use
  Company Number: GB-BRISTOL-MYERS SQUIBB COMPANY-BMS-2017-029152

PATIENT
  Age: 71 Year
  Sex: Female
  Weight: 75.9 kg

DRUGS (2)
  1. IPILIMUMAB [Suspect]
     Active Substance: IPILIMUMAB
     Indication: METASTATIC MALIGNANT MELANOMA
     Dosage: 220 MG, UNK
     Route: 042
     Dates: start: 20161117, end: 20170126
  2. NIVOLUMAB [Suspect]
     Active Substance: NIVOLUMAB
     Indication: METASTATIC MALIGNANT MELANOMA
     Route: 042
     Dates: start: 20161117

REACTIONS (3)
  - Type 1 diabetes mellitus [Unknown]
  - Diabetic ketoacidosis [Recovered/Resolved with Sequelae]
  - Adrenal insufficiency [Not Recovered/Not Resolved]

NARRATIVE: CASE EVENT DATE: 20170119
